FAERS Safety Report 7944020-9 (Version None)
Quarter: 2011Q4

REPORT INFORMATION
  Report Type: 
  Country: None (occurrence: None)
  Receive Date: 20111128
  Receipt Date: 20111116
  Transmission Date: 20120403
  Serious: Yes (Hospitalization)
  Sender: FDA-Public Use
  Company Number: JP-CELGENEUS-087-21660-11112732

PATIENT
  Sex: Female
  Weight: 45 kg

DRUGS (4)
  1. VITAMIN [Concomitant]
     Route: 065
  2. ABRAXANE [Suspect]
     Indication: BREAST CANCER METASTATIC
     Dosage: 348 MILLIGRAM
     Route: 041
     Dates: start: 20110201, end: 20110906
  3. ABRAXANE [Suspect]
     Dosage: 348 MILLIGRAM
     Route: 041
     Dates: start: 20110927
  4. LYRICA [Concomitant]
     Route: 065

REACTIONS (1)
  - HYPOAESTHESIA [None]
